FAERS Safety Report 15984360 (Version 1)
Quarter: 2019Q1

REPORT INFORMATION
  Report Type: Report from Study
  Country: ES (occurrence: ES)
  Receive Date: 20190220
  Receipt Date: 20190220
  Transmission Date: 20190418
  Serious: Yes (Hospitalization)
  Sender: FDA-Public Use
  Company Number: ES-ACCORD-108226

PATIENT
  Age: 72 Year
  Sex: Female

DRUGS (1)
  1. CAPECITABINE. [Suspect]
     Active Substance: CAPECITABINE
     Indication: CARCINOID TUMOUR OF THE SMALL BOWEL
     Dosage: 500 MG, 1-0-1 X 14 DAYS IN CYCLES
     Route: 048
     Dates: start: 201604, end: 20170207

REACTIONS (2)
  - Refractory anaemia with an excess of blasts [Not Recovered/Not Resolved]
  - Off label use [Unknown]

NARRATIVE: CASE EVENT DATE: 20170207
